FAERS Safety Report 7918316-0 (Version None)
Quarter: 2011Q4

REPORT INFORMATION
  Report Type: 
  Country: None (occurrence: None)
  Receive Date: 20111116
  Receipt Date: 20111111
  Transmission Date: 20120403
  Serious: No
  Sender: FDA-Public Use
  Company Number: US-PFIZER INC-2011278372

PATIENT

DRUGS (2)
  1. LIPITOR [Suspect]
     Dosage: UNK
  2. LANTUS [Suspect]
     Dosage: UNK

REACTIONS (1)
  - HYPOGLYCAEMIA [None]
